FAERS Safety Report 5390978-4 (Version None)
Quarter: 2007Q3

REPORT INFORMATION
  Report Type: 
  Country: None (occurrence: None)
  Receive Date: 20070716
  Receipt Date: 20050926
  Transmission Date: 20080115
  Serious: Yes (Death, Hospitalization)
  Sender: FDA-Public Use
  Company Number: MPS1-10437

PATIENT
  Age: 6 Year
  Sex: Female
  Weight: 14.7 kg

DRUGS (9)
  1. ALDURAZYME [Suspect]
     Indication: MUCOPOLYSACCHARIDOSIS I
     Dosage: 0.58 MG/KG QWK IV
     Route: 042
     Dates: start: 20031007, end: 20050920
  2. ALBUTEROL [Concomitant]
  3. PREVACID [Concomitant]
  4. NASONEX [Concomitant]
  5. TOPAMAX [Concomitant]
  6. CAPTOPRIL [Concomitant]
  7. NITROGLYCERIN [Concomitant]
  8. CLINDAMYCIN HCL [Concomitant]
  9. ATARAX [Concomitant]

REACTIONS (5)
  - AGITATION [None]
  - COLLAPSE OF LUNG [None]
  - DIAPHRAGMATIC HERNIA [None]
  - INTESTINAL OBSTRUCTION [None]
  - PNEUMONIA [None]
